FAERS Safety Report 7597848-1 (Version None)
Quarter: 2011Q3

REPORT INFORMATION
  Report Type: 
  Country: None (occurrence: None)
  Receive Date: 20110708
  Receipt Date: 20110504
  Transmission Date: 20111222
  Serious: No
  Sender: FDA-Public Use
  Company Number: US-PFIZER INC-2011145149

PATIENT
  Age: 70 Year
  Sex: Female

DRUGS (5)
  1. LEVOFLOXACIN [Suspect]
     Indication: DIVERTICULITIS
     Dosage: UNK
     Dates: end: 20110501
  2. FLAGYL [Suspect]
     Indication: DIVERTICULITIS
     Dosage: UNK
     Dates: end: 20110501
  3. ACETAMINOPHEN AND HYDROCODONE BITARTRATE [Concomitant]
  4. CIPROFLOXACIN [Suspect]
     Indication: DIVERTICULITIS
     Dosage: UNK
     Dates: end: 20110501
  5. FLECTOR [Suspect]
     Indication: PAIN IN EXTREMITY
     Dosage: 1.3% ONE PATCH ONCE
     Route: 061
     Dates: start: 20110502

REACTIONS (3)
  - VULVOVAGINAL PRURITUS [None]
  - VULVAL DISORDER [None]
  - VULVOVAGINAL DISCOMFORT [None]
